FAERS Safety Report 10370861 (Version 4)
Quarter: 2014Q3

REPORT INFORMATION
  Report Type: Report from Study
  Country: BR (occurrence: BR)
  Receive Date: 20140808
  Receipt Date: 20140902
  Transmission Date: 20150326
  Serious: Yes (Hospitalization, Disabling, Other)
  Sender: FDA-Public Use
  Company Number: PHHY2014BR081796

PATIENT
  Sex: Female
  Weight: 62 kg

DRUGS (4)
  1. MAREVAN [Concomitant]
     Active Substance: WARFARIN SODIUM
     Indication: FACTOR II MUTATION
     Dosage: 1 DF, DAILY
     Route: 048
     Dates: start: 201208
  2. GILENYA [Suspect]
     Active Substance: FINGOLIMOD HYDROCHLORIDE
     Indication: MULTIPLE SCLEROSIS
     Dosage: 0.5 MG, QD
     Route: 048
     Dates: start: 201405
  3. TORVAL [Concomitant]
     Active Substance: VALPROIC ACID
     Dosage: 1 DF, DAILY
     Route: 048
  4. TOPIRAMATE. [Concomitant]
     Active Substance: TOPIRAMATE
     Dosage: 1 DF, DAILY
     Route: 048

REACTIONS (16)
  - Hearing impaired [Recovered/Resolved]
  - Syncope [Recovered/Resolved]
  - Gait disturbance [Not Recovered/Not Resolved]
  - Central nervous system lesion [Recovered/Resolved]
  - Hypokinesia [Not Recovered/Not Resolved]
  - Vomiting [Recovered/Resolved]
  - Loss of consciousness [Recovered/Resolved]
  - Visual acuity reduced [Not Recovered/Not Resolved]
  - Suicide attempt [Unknown]
  - Multiple sclerosis relapse [Recovered/Resolved]
  - Hypoaesthesia [Not Recovered/Not Resolved]
  - Tremor [Not Recovered/Not Resolved]
  - Muscular weakness [Recovered/Resolved]
  - Labyrinthitis [Recovered/Resolved]
  - Headache [Not Recovered/Not Resolved]
  - Pain [Not Recovered/Not Resolved]
